FAERS Safety Report 13795479 (Version 1)
Quarter: 2017Q3

REPORT INFORMATION
  Report Type: Spontaneous
  Country: IN (occurrence: IN)
  Receive Date: 20170726
  Receipt Date: 20170726
  Transmission Date: 20171127
  Serious: Yes (Other)
  Sender: FDA-Public Use
  Company Number: IN-BAYER-2017-135279

PATIENT
  Age: 5 Year
  Sex: Female

DRUGS (3)
  1. SORAFENIB (RAF KINASE INHIBITOR) [Suspect]
     Active Substance: SORAFENIB
     Indication: HEPATOBLASTOMA
     Dosage: 100 MG, QD
  2. SORAFENIB (RAF KINASE INHIBITOR) [Suspect]
     Active Substance: SORAFENIB
     Indication: HEPATOBLASTOMA
     Dosage: 200 MG, QD
  3. SORAFENIB (RAF KINASE INHIBITOR) [Suspect]
     Active Substance: SORAFENIB
     Indication: HEPATOBLASTOMA
     Dosage: 50 MG, BID

REACTIONS (10)
  - Fatigue [Recovering/Resolving]
  - Hepatoblastoma recurrent [None]
  - Drug administered to patient of inappropriate age [None]
  - Therapeutic product effective for unapproved indication [None]
  - Metastasis [None]
  - Transaminases increased [Recovering/Resolving]
  - Decreased appetite [Recovering/Resolving]
  - Off label use [None]
  - Product use in unapproved indication [None]
  - Palmar-plantar erythrodysaesthesia syndrome [Recovering/Resolving]
